FAERS Safety Report 19725579 (Version 1)
Quarter: 2021Q3

REPORT INFORMATION
  Report Type: Spontaneous
  Country: US (occurrence: US)
  Receive Date: 20210819
  Receipt Date: 20210819
  Transmission Date: 20211014
  Serious: Yes (Other)
  Sender: FDA-Public Use
  Company Number: US-TEVA-2021-US-1941689

PATIENT
  Age: 80 Year
  Sex: Female

DRUGS (1)
  1. CLONIDINE HYDROCHLORIDE. [Suspect]
     Active Substance: CLONIDINE HYDROCHLORIDE
     Route: 062

REACTIONS (4)
  - Erythema [Recovered/Resolved]
  - Dermatitis contact [Unknown]
  - Skin irritation [Recovered/Resolved]
  - Adverse event [Unknown]
